FAERS Safety Report 8820363 (Version 6)
Quarter: 2013Q3

REPORT INFORMATION
  Report Type: Spontaneous
  Country: US (occurrence: US)
  Receive Date: 20121002
  Receipt Date: 20130926
  Transmission Date: 20140515
  Serious: Yes (Hospitalization)
  Sender: FDA-Public Use
  Company Number: US-BAYER-2012-099524

PATIENT
  Age: 31 Year
  Sex: Female
  Weight: 61.22 kg

DRUGS (9)
  1. YAZ [Suspect]
     Indication: ACNE
     Dosage: UNK
     Dates: start: 20100613, end: 20110205
  2. YAZ [Suspect]
     Indication: CONTRACEPTION
     Dosage: UNK
     Dates: start: 20110322
  3. YAZ [Suspect]
     Indication: ACNE
     Dosage: UNK
     Dates: start: 20110607, end: 20110705
  4. PHENTERMINE [Concomitant]
     Indication: WEIGHT LOSS DIET
     Dosage: UNK
     Route: 048
     Dates: start: 20011211, end: 20111111
  5. IBUPROFEN [Concomitant]
     Dosage: 800 MG, UNK
  6. PREDNISONE [Concomitant]
     Dosage: 20 MG, UNK
  7. CYCLOBENZAPRINE [Concomitant]
     Dosage: 10 MG, UNK
  8. PAXIL [Concomitant]
     Indication: DEPRESSION
     Dosage: 20 MG, UNK
     Route: 048
     Dates: start: 20110913
  9. AMOXICILLIN [Concomitant]
     Dosage: 500 MG, UNK
     Route: 048
     Dates: start: 20111006

REACTIONS (11)
  - Cerebrovascular accident [None]
  - Deep vein thrombosis [None]
  - Pain [None]
  - General physical health deterioration [None]
  - Emotional distress [None]
  - Injury [None]
  - Anhedonia [None]
  - Anxiety [None]
  - Pain [None]
  - Hemiplegia [None]
  - Aphasia [None]
